FAERS Safety Report 9908395 (Version 1)
Quarter: 2014Q1

REPORT INFORMATION
  Report Type: Spontaneous
  Country: US (occurrence: US)
  Receive Date: 20140219
  Receipt Date: 20140219
  Transmission Date: 20141002
  Serious: Yes (Other)
  Sender: FDA-Public Use
  Company Number: US-ASTRAZENECA-2014SE09921

PATIENT
  Age: 63 Year
  Sex: Female
  Weight: 81.6 kg

DRUGS (8)
  1. NEXIUM [Suspect]
     Indication: GASTROOESOPHAGEAL REFLUX DISEASE
     Route: 048
     Dates: start: 2001, end: 201310
  2. NEXIUM [Suspect]
     Indication: ULCER
     Route: 048
     Dates: start: 2001, end: 201310
  3. PRILOSEC [Suspect]
     Indication: GASTROOESOPHAGEAL REFLUX DISEASE
     Dosage: BID
     Route: 048
     Dates: start: 1989, end: 2001
  4. PRILOSEC [Suspect]
     Indication: GASTROOESOPHAGEAL REFLUX DISEASE
     Dosage: MYLAN, 40 MG, TWO TIMES A DAY
     Route: 048
     Dates: start: 201310
  5. COUMADIN [Concomitant]
     Indication: DEEP VEIN THROMBOSIS
  6. COUMADIN [Concomitant]
     Indication: COAGULOPATHY
  7. COUMADIN [Concomitant]
     Indication: DEEP VEIN THROMBOSIS
     Route: 048
  8. COUMADIN [Concomitant]
     Indication: COAGULOPATHY
     Route: 048

REACTIONS (13)
  - Fall [Unknown]
  - Foot fracture [Not Recovered/Not Resolved]
  - Pancreatitis [Recovered/Resolved]
  - Renal cancer [Recovered/Resolved]
  - Coagulopathy [Not Recovered/Not Resolved]
  - Malnutrition [Unknown]
  - Body height decreased [Unknown]
  - Irritable bowel syndrome [Unknown]
  - Weight decreased [Unknown]
  - Off label use [Unknown]
  - Drug ineffective [Unknown]
  - Muscle rupture [Unknown]
  - Rotator cuff syndrome [Not Recovered/Not Resolved]
